FAERS Safety Report 18202801 (Version 1)
Quarter: 2020Q3

REPORT INFORMATION
  Report Type: Spontaneous
  Country: US (occurrence: US)
  Receive Date: 20200827
  Receipt Date: 20200827
  Transmission Date: 20201103
  Serious: Yes (Death)
  Sender: FDA-Public Use
  Company Number: None

PATIENT
  Age: 74 Year
  Sex: Female
  Weight: 59 kg

DRUGS (2)
  1. REMDESIVIR. [Suspect]
     Active Substance: REMDESIVIR
     Indication: COVID-19
     Route: 042
     Dates: start: 20200808, end: 20200811
  2. TOCILIZUMAB. [Suspect]
     Active Substance: TOCILIZUMAB
     Indication: COVID-19
     Dosage: ?          OTHER FREQUENCY:ONCE;?
     Route: 058
     Dates: start: 20200811, end: 20200811

REACTIONS (6)
  - Myocardial infarction [None]
  - Oliguria [None]
  - Hyperkalaemia [None]
  - Cardio-respiratory arrest [None]
  - Renal failure [None]
  - Ventricular tachycardia [None]

NARRATIVE: CASE EVENT DATE: 20200824
